FAERS Safety Report 5700360-5 (Version None)
Quarter: 2008Q2

REPORT INFORMATION
  Report Type: 
  Country: None (occurrence: None)
  Receive Date: 20080410
  Receipt Date: 20080328
  Transmission Date: 20081010
  Serious: Yes (Other)
  Sender: FDA-Public Use
  Company Number: FR-PFIZER INC-2008016091

PATIENT
  Sex: Female
  Weight: 47 kg

DRUGS (1)
  1. CHAMPIX [Suspect]
     Indication: SMOKING CESSATION THERAPY
     Dosage: DAILY DOSE:2MG
     Route: 048

REACTIONS (3)
  - DEPRESSION [None]
  - PANIC ATTACK [None]
  - PARAESTHESIA [None]
